FAERS Safety Report 7648643-6 (Version None)
Quarter: 2011Q3

REPORT INFORMATION
  Report Type: 
  Country: None (occurrence: None)
  Receive Date: 20110801
  Receipt Date: 20110720
  Transmission Date: 20111222
  Serious: Yes (Hospitalization)
  Sender: FDA-Public Use
  Company Number: PHHY2011US66399

PATIENT
  Age: 75 Year
  Sex: Male

DRUGS (7)
  1. NAMENDA [Concomitant]
     Dosage: UNK UKN, UNK
  2. SEROQUEL [Concomitant]
     Dosage: UNK UKN, UNK
  3. EXELON [Suspect]
     Dosage: 9.5 MG, DAILY
     Route: 062
  4. METFORMIN HCL [Concomitant]
     Dosage: UNK UKN, UNK
  5. PREVACID [Concomitant]
     Dosage: UNK UKN, UNK
  6. CYMBALTA [Concomitant]
     Dosage: UNK UKN, UNK
  7. ASPIRIN [Concomitant]
     Dosage: UNK UKN, UNK

REACTIONS (2)
  - BUNDLE BRANCH BLOCK RIGHT [None]
  - ATRIOVENTRICULAR BLOCK SECOND DEGREE [None]
